FAERS Safety Report 8842266 (Version 2)
Quarter: 2013Q3

REPORT INFORMATION
  Report Type: Report from Study
  Country: JP (occurrence: JP)
  Receive Date: 20121016
  Receipt Date: 20130920
  Transmission Date: 20140515
  Serious: Yes (Other)
  Sender: FDA-Public Use
  Company Number: JP-VERTEX PHARMACEUTICAL INC.-2012-022756

PATIENT
  Age: 66 Year
  Sex: Male

DRUGS (11)
  1. VX-950 (TELAPREVIR) [Suspect]
     Indication: CHRONIC HEPATITIS C
     Dosage: 2250 MG, QD
     Route: 048
     Dates: start: 20120807, end: 20120813
  2. VX-950 (TELAPREVIR) [Suspect]
     Dosage: 1750 MG, QD
     Route: 048
     Dates: start: 20120814, end: 20120904
  3. VX-950 (TELAPREVIR) [Suspect]
     Dosage: 1000 MG, QD
     Route: 048
     Dates: start: 20120905, end: 20121031
  4. REBETOL [Suspect]
     Indication: CHRONIC HEPATITIS C
     Dosage: 800 MG, QD
     Route: 048
     Dates: start: 20120807, end: 20120828
  5. REBETOL [Suspect]
     Dosage: 500 MG, QD
     Route: 048
     Dates: start: 20120829, end: 20120918
  6. REBETOL [Suspect]
     Dosage: 300 MG, QD
     Route: 048
     Dates: start: 20120919, end: 20120925
  7. REBETOL [Suspect]
     Dosage: 200 MG, QD
     Route: 048
     Dates: start: 20120926, end: 20121128
  8. REBETOL [Suspect]
     Dosage: 400 MG, QD
     Route: 048
     Dates: start: 20121129, end: 20121226
  9. REBETOL [Suspect]
     Dosage: 600 MG, QD
     Route: 048
     Dates: start: 20121227, end: 20130125
  10. PEGINTERFERON ALFA-2B [Suspect]
     Indication: CHRONIC HEPATITIS C
     Dosage: 1.5 ?G/KG, QW
     Route: 058
     Dates: start: 20120807, end: 20130118
  11. AMLODIN [Concomitant]
     Dosage: 2.5 MG, QD
     Route: 048

REACTIONS (1)
  - Haemoglobin decreased [Recovered/Resolved]
